FAERS Safety Report 5344324-2 (Version None)
Quarter: 2007Q2

REPORT INFORMATION
  Report Type: 
  Country: None (occurrence: None)
  Receive Date: 20070604
  Receipt Date: 20070523
  Transmission Date: 20071010
  Serious: Yes (Hospitalization)
  Sender: FDA-Public Use
  Company Number: HQWYE319323MAY07

PATIENT
  Age: 54 Year
  Sex: Female
  Weight: 71.8 kg

DRUGS (3)
  1. MYLOTARG [Suspect]
     Indication: ACUTE MYELOID LEUKAEMIA
     Dosage: 11 MG TOTAL DOSE ADMINISTERED
     Route: 042
     Dates: start: 20070402, end: 20070402
  2. CYTARABINE [Suspect]
     Indication: ACUTE MYELOID LEUKAEMIA
     Dosage: 177 MG TOTAL DOSE ADMINISTERED
     Route: 042
     Dates: start: 20070330, end: 20070405
  3. DAUNORUBICIN HCL [Suspect]
     Indication: ACUTE MYELOID LEUKAEMIA
     Dosage: 80 MG TOTAL DOSE ADMINISTERED
     Route: 042
     Dates: start: 20070330, end: 20070401

REACTIONS (2)
  - TORSADE DE POINTES [None]
  - VENTRICULAR FIBRILLATION [None]
